FAERS Safety Report 8032379-6 (Version None)
Quarter: 2012Q1

REPORT INFORMATION
  Report Type: 
  Country: None (occurrence: None)
  Receive Date: 20120109
  Receipt Date: 20120109
  Transmission Date: 20120608
  Serious: Yes (Hospitalization)
  Sender: FDA-Public Use
  Company Number: None

PATIENT
  Age: 84 Year
  Sex: Male
  Weight: 67.8 kg

DRUGS (2)
  1. SULFAMETHOXAZOLE AND TRIMETHOPRIM [Suspect]
     Indication: FOLLICULITIS
     Dosage: 800/160 MG BID PO
     Route: 048
     Dates: start: 20110815, end: 20110826
  2. SULFAMETHOXAZOLE AND TRIMETHOPRIM [Suspect]
     Indication: FOLLICULITIS
     Dosage: 800/160 MG BID PO
     Route: 048
     Dates: start: 20110815, end: 20110824

REACTIONS (1)
  - THROMBOCYTOPENIA [None]
